FAERS Safety Report 4922597-5 (Version None)
Quarter: 2006Q1

REPORT INFORMATION
  Report Type: 
  Country: None (occurrence: None)
  Receive Date: 20060224
  Receipt Date: 20060216
  Transmission Date: 20060701
  Serious: Yes (Hospitalization)
  Sender: FDA-Public Use
  Company Number: FR-GLAXOSMITHKLINE-B0411770A

PATIENT
  Age: 75 Year
  Sex: Female

DRUGS (7)
  1. REQUIP [Suspect]
     Indication: PARKINSON'S DISEASE
     Dosage: .25MG THREE TIMES PER DAY
     Route: 048
     Dates: start: 19980916, end: 20051011
  2. MODOPAR [Suspect]
     Indication: PARKINSON'S DISEASE
     Dosage: 250MG FOUR TIMES PER DAY
     Route: 048
     Dates: start: 19980916, end: 20051011
  3. NOZINAN [Suspect]
     Route: 048
     Dates: start: 19980916, end: 20051011
  4. CLONAZEPAM [Suspect]
     Route: 048
     Dates: start: 19980916, end: 20051011
  5. XANAX [Suspect]
     Dosage: .5MG THREE TIMES PER DAY
     Route: 048
     Dates: start: 19980916, end: 20051011
  6. IMOVANE [Suspect]
     Dosage: 7.5MG PER DAY
     Route: 048
     Dates: start: 19980916, end: 20051011
  7. OMEPRAZOLE [Concomitant]
     Route: 048

REACTIONS (2)
  - DIFFICULTY IN WALKING [None]
  - DYSPHAGIA [None]
